FAERS Safety Report 10073870 (Version 1)
Quarter: 2014Q2

REPORT INFORMATION
  Report Type: Spontaneous
  Country: US (occurrence: US)
  Receive Date: 20140412
  Receipt Date: 20140412
  Transmission Date: 20141212
  Serious: No
  Sender: FDA-Public Use
  Company Number: US-009507513-1404USA003692

PATIENT
  Age: 35 Year
  Sex: Female

DRUGS (10)
  1. AMITRIPTYLINE HYDROCHLORIDE [Suspect]
     Indication: EYE DISORDER
     Dosage: 50 MG, UNK
     Route: 048
  2. AMITRIPTYLINE HYDROCHLORIDE [Suspect]
     Indication: MIGRAINE
  3. INDOMETHACIN [Suspect]
     Dosage: 75 MG, TID
  4. GABAPENTIN [Concomitant]
     Dosage: 1800MG, UNK
  5. PROPRANOLOL HYDROCHLORIDE [Concomitant]
     Dosage: 80 MG, UNK
  6. TOPIRAMATE [Concomitant]
     Dosage: 50 MG, UNK
  7. BOTULINUM TOXIN TYPE A [Concomitant]
     Dosage: INJECTIONS, 150 UNITS X 2
  8. PREDNISONE [Concomitant]
     Dosage: 80 MG, UNK
  9. METHOTREXATE [Concomitant]
     Dosage: UNK
  10. THERAPEUTIC RADIOPHARMACEUTICAL (UNSPECIFIED) [Concomitant]
     Dosage: EXTERNAL BEAM RADIATION (25 CGY OVER 14 FRACTIONS)

REACTIONS (1)
  - Drug ineffective [Unknown]
